FAERS Safety Report 8290005-5 (Version None)
Quarter: 2012Q2

REPORT INFORMATION
  Report Type: 
  Country: None (occurrence: None)
  Receive Date: 20120417
  Receipt Date: 20120406
  Transmission Date: 20120825
  Serious: Yes (Other)
  Sender: FDA-Public Use
  Company Number: US-COVIDIEN/TYCO HEALTHCARE/MALLINCKRODT-T201201424

PATIENT
  Age: 58 Year
  Sex: Female

DRUGS (2)
  1. HYDROMORPHONE HCL [Suspect]
     Dosage: UNK
  2. MORPHINE [Suspect]
     Dosage: UNK

REACTIONS (2)
  - DRUG ABUSE [None]
  - DRUG DIVERSION [None]
